FAERS Safety Report 8759568 (Version 2)
Quarter: 2012Q4

REPORT INFORMATION
  Report Type: 
  Country: RU (occurrence: RU)
  Receive Date: 20120829
  Receipt Date: 20121017
  Transmission Date: 20130627
  Serious: Yes (Hospitalization, Other)
  Sender: FDA-Public Use
  Company Number: PHHY2012RU072980

PATIENT
  Age: 63 Year
  Sex: Female

DRUGS (6)
  1. CEFOTAXIME [Suspect]
     Indication: PNEUMONIA
  2. METRONIDAZOLE [Suspect]
     Indication: PNEUMONIA
  3. CIPROFLOXACIN [Suspect]
     Indication: PNEUMONIA
  4. CIFRAN [Suspect]
     Indication: PNEUMONIA
  5. SUMAMED [Suspect]
     Indication: PNEUMONIA
  6. ENALAPRIL [Concomitant]
     Indication: HYPERTENSION
     Dosage: 5 mg, BID

REACTIONS (8)
  - Alveolitis allergic [Recovered/Resolved]
  - Interstitial lung disease [Recovered/Resolved]
  - Dyspnoea [Recovered/Resolved]
  - Decreased appetite [Recovered/Resolved]
  - Asthenia [Recovered/Resolved]
  - Pulmonary fibrosis [Recovered/Resolved]
  - Concomitant disease progression [Recovered/Resolved]
  - Weight decreased [Unknown]
